FAERS Safety Report 17806956 (Version 2)
Quarter: 2020Q2

REPORT INFORMATION
  Report Type: Spontaneous
  Country: US (occurrence: US)
  Receive Date: 20200520
  Receipt Date: 20200527
  Transmission Date: 20200714
  Serious: No
  Sender: FDA-Public Use
  Company Number: US-PFIZER INC-2020200109

PATIENT
  Age: 28 Year
  Sex: Female
  Weight: 88.44 kg

DRUGS (2)
  1. IBRANCE [Suspect]
     Active Substance: PALBOCICLIB
     Indication: BREAST CANCER
     Dosage: 125 MG, CYCLIC
     Route: 048
     Dates: start: 202001
  2. ADVIL [IBUPROFEN] [Concomitant]
     Active Substance: IBUPROFEN
     Dosage: 200 MG

REACTIONS (3)
  - Vision blurred [Unknown]
  - Cognitive disorder [Unknown]
  - Memory impairment [Unknown]
